FAERS Safety Report 5483373-0 (Version None)
Quarter: 2007Q4

REPORT INFORMATION
  Report Type: 
  Country: None (occurrence: None)
  Receive Date: 20071012
  Receipt Date: 20071002
  Transmission Date: 20080405
  Serious: Yes (Other)
  Sender: FDA-Public Use
  Company Number: US-JNJFOC-20071001169

PATIENT
  Age: 51 Year
  Sex: Female
  Weight: 90.72 kg

DRUGS (3)
  1. TOPAMAX [Suspect]
     Route: 048
  2. TOPAMAX [Suspect]
     Indication: MIGRAINE PROPHYLAXIS
     Route: 048
  3. FISH OIL [Concomitant]
     Route: 048

REACTIONS (8)
  - ANXIETY [None]
  - EAR INFECTION [None]
  - INAPPROPRIATE SCHEDULE OF DRUG ADMINISTRATION [None]
  - MANIA [None]
  - NAUSEA [None]
  - NEURALGIA [None]
  - PANIC ATTACK [None]
  - SELF-INJURIOUS IDEATION [None]
